FAERS Safety Report 24992748 (Version 2)
Quarter: 2025Q3

REPORT INFORMATION
  Report Type: Spontaneous
  Country: EU (occurrence: EU)
  Receive Date: 20250221
  Receipt Date: 20250802
  Transmission Date: 20251020
  Serious: Yes (Life-Threatening, Hospitalization, Other)
  Sender: ALEXION PHARMACEUTICALS
  Company Number: EU-ASTRAZENECA-202502GLO014786FR

PATIENT
  Age: 22 Year
  Sex: Female
  Weight: 77 kg

DRUGS (2)
  1. QUETIAPINE [Suspect]
     Active Substance: QUETIAPINE
     Indication: Poisoning deliberate
     Dosage: 400 MILLIGRAM, QD
     Dates: start: 20250105, end: 20250105
  2. BRINTELLIX [Suspect]
     Active Substance: VORTIOXETINE HYDROBROMIDE
     Indication: Poisoning deliberate
     Dosage: 10 MILLIGRAM, QD
     Dates: start: 20250105, end: 20250105

REACTIONS (8)
  - Intentional overdose [Recovered/Resolved]
  - Coma [Recovered/Resolved]
  - Serotonin syndrome [Recovered/Resolved]
  - Multisystem inflammatory syndrome [Recovered/Resolved]
  - Rhabdomyolysis [Recovered/Resolved]
  - Cholestasis [Recovered/Resolved]
  - Cell death [Recovered/Resolved]
  - Pathogen resistance [Unknown]

NARRATIVE: CASE EVENT DATE: 20250106
